FAERS Safety Report 5410887-1 (Version None)
Quarter: 2007Q3

REPORT INFORMATION
  Report Type: 
  Country: None (occurrence: None)
  Receive Date: 20070809
  Receipt Date: 20070809
  Transmission Date: 20080115
  Serious: Yes (Hospitalization)
  Sender: FDA-Public Use
  Company Number: None

PATIENT
  Age: 89 Year
  Sex: Female

DRUGS (9)
  1. ARICEPT [Suspect]
     Indication: ANXIETY
     Dosage: 10 MG DAILY PO
     Route: 048
     Dates: start: 20040709, end: 20060512
  2. NAMENDA [Concomitant]
  3. TOPROL-XL [Concomitant]
  4. LOPRESSOR [Concomitant]
  5. NORVASC [Concomitant]
  6. ARICEPT [Concomitant]
  7. PROTONIX [Concomitant]
  8. RISPERIDONE [Concomitant]
  9. OS-CAL [Concomitant]

REACTIONS (3)
  - DRUG TOXICITY [None]
  - IDIOPATHIC THROMBOCYTOPENIC PURPURA [None]
  - PLATELET COUNT DECREASED [None]
